FAERS Safety Report 4622985-0 (Version None)
Quarter: 2005Q1

REPORT INFORMATION
  Report Type: 
  Country: None (occurrence: None)
  Receive Date: 20050329
  Receipt Date: 20050314
  Transmission Date: 20050727
  Serious: Yes (Hospitalization)
  Sender: FDA-Public Use
  Company Number: 10595

PATIENT
  Age: 20 Year
  Sex: 0

DRUGS (2)
  1. ACYCLOVIR [Suspect]
     Dosage: 500 MG TID, IV
     Route: 042
     Dates: start: 20041126, end: 20041130
  2. PREDNISOLONE [Concomitant]

REACTIONS (2)
  - GAMMA-GLUTAMYLTRANSFERASE INCREASED [None]
  - LIVER FUNCTION TEST ABNORMAL [None]
